FAERS Safety Report 16133933 (Version 1)
Quarter: 2019Q1

REPORT INFORMATION
  Report Type: Report from Study
  Country: JP (occurrence: JP)
  Receive Date: 20190329
  Receipt Date: 20190329
  Transmission Date: 20190418
  Serious: Yes (Other)
  Sender: FDA-Public Use
  Company Number: JP-ACTELION-A-CH2019-188156

PATIENT
  Age: 44 Year
  Sex: Female

DRUGS (12)
  1. OPSUMIT [Suspect]
     Active Substance: MACITENTAN
     Indication: PULMONARY HYPERTENSION
     Dosage: 10 MG, QD
     Route: 048
     Dates: start: 20180907
  2. BERAPROST NA [Concomitant]
     Active Substance: BERAPROST SODIUM
  3. BAYASPIRIN [Concomitant]
     Active Substance: ASPIRIN
  4. PLAVIX [Concomitant]
     Active Substance: CLOPIDOGREL BISULFATE
  5. LUPRAC [Concomitant]
     Active Substance: TORSEMIDE
  6. ADEMPAS [Suspect]
     Active Substance: RIOCIGUAT
     Dosage: 6 MG, QD
     Route: 048
     Dates: start: 20180921
  7. ADEMPAS [Suspect]
     Active Substance: RIOCIGUAT
     Indication: PULMONARY HYPERTENSION
     Dosage: 7.5 MG, QD
     Route: 048
     Dates: start: 20180907, end: 20180920
  8. AMLODIN [Concomitant]
     Active Substance: AMLODIPINE BESYLATE
  9. MAGNESIUM OXIDE. [Concomitant]
     Active Substance: MAGNESIUM OXIDE
  10. OXYGEN. [Concomitant]
     Active Substance: OXYGEN
  11. OMEPRAL [Concomitant]
     Active Substance: OMEPRAZOLE
  12. FRANCETIN T [Concomitant]

REACTIONS (4)
  - Haemoptysis [Recovering/Resolving]
  - Iron deficiency anaemia [Recovering/Resolving]
  - Genital haemorrhage [Recovered/Resolved]
  - Transfusion [Recovering/Resolving]

NARRATIVE: CASE EVENT DATE: 20180921
